FAERS Safety Report 6580669-6 (Version None)
Quarter: 2010Q1

REPORT INFORMATION
  Report Type: 
  Country: None (occurrence: None)
  Receive Date: 20100212
  Receipt Date: 20100205
  Transmission Date: 20100710
  Serious: Yes (Death)
  Sender: FDA-Public Use
  Company Number: US-BRACCO-004006

PATIENT
  Sex: Male

DRUGS (1)
  1. ISOVUE-128 [Suspect]
     Indication: COMPUTERISED TOMOGRAM
     Route: 065
     Dates: start: 20100101, end: 20100101

REACTIONS (1)
  - DEATH [None]
